FAERS Safety Report 20078422 (Version 1)
Quarter: 2021Q4

REPORT INFORMATION
  Report Type: Spontaneous
  Country: FR (occurrence: FR)
  Receive Date: 20211117
  Receipt Date: 20211117
  Transmission Date: 20220303
  Serious: Yes (Hospitalization, Other)
  Sender: FDA-Public Use
  Company Number: FR-AUROBINDO-AUR-APL-2021-046747

PATIENT
  Age: 45 Year
  Sex: Female
  Weight: 69 kg

DRUGS (4)
  1. AMOXICILLIN [Suspect]
     Active Substance: AMOXICILLIN
     Indication: Localised infection
     Dosage: UNK
     Route: 048
     Dates: start: 20210913, end: 202109
  2. EPIRUBICIN [Suspect]
     Active Substance: EPIRUBICIN
     Indication: Breast cancer
     Dosage: 178 MILLIGRAM (1 CYCLE)
     Route: 042
     Dates: start: 20210927, end: 20210927
  3. CYCLOPHOSPHAMIDE [Suspect]
     Active Substance: CYCLOPHOSPHAMIDE
     Indication: Breast cancer
     Dosage: 89 MILLIGRAM (1 CYCLE)
     Route: 042
     Dates: start: 20210927, end: 20210927
  4. FLUOROURACIL [Suspect]
     Active Substance: FLUOROURACIL
     Indication: Breast cancer
     Dosage: 89 MILLIGRAM (1 CYCLE)
     Route: 042
     Dates: start: 20210927, end: 20210927

REACTIONS (1)
  - Neutropenic colitis [Recovered/Resolved]

NARRATIVE: CASE EVENT DATE: 20211002
